FAERS Safety Report 17559880 (Version 1)
Quarter: 2020Q1

REPORT INFORMATION
  Report Type: Spontaneous
  Country: JP (occurrence: JP)
  Receive Date: 20200319
  Receipt Date: 20200319
  Transmission Date: 20200409
  Serious: Yes (Hospitalization)
  Sender: FDA-Public Use
  Company Number: JP-ASTRAZENECA-2020SE39732

PATIENT
  Sex: Male

DRUGS (2)
  1. ADRENAL HORMONE PREPARATIONS [Concomitant]
     Active Substance: UNSPECIFIED INGREDIENT
     Dosage: DOSE UNKNOWN
     Route: 065
  2. PULMICORT TURBUHALER [Suspect]
     Active Substance: BUDESONIDE
     Indication: ASTHMA
     Dosage: 200.0UG UNKNOWN
     Route: 055

REACTIONS (2)
  - Pneumonia bacterial [Unknown]
  - Cough [Unknown]

NARRATIVE: CASE EVENT DATE: 202002
